FAERS Safety Report 13627740 (Version 1)
Quarter: 2017Q2

REPORT INFORMATION
  Report Type: Spontaneous
  Country: US (occurrence: US)
  Receive Date: 20170608
  Receipt Date: 20170608
  Transmission Date: 20170830
  Serious: Yes (Disabling)
  Sender: FDA-Public Use
  Company Number: None

PATIENT
  Age: 60 Year
  Sex: Female
  Weight: 76.5 kg

DRUGS (7)
  1. XELJANZ [Concomitant]
     Active Substance: TOFACITINIB CITRATE
  2. BIOTIN [Concomitant]
     Active Substance: BIOTIN
  3. HUMIRA [Suspect]
     Active Substance: ADALIMUMAB
     Indication: RHEUMATOID ARTHRITIS
     Dosage: ?          QUANTITY:1 40 MG/0.8 ML;OTHER FREQUENCY:EVERY 2 WEEKS;?
     Route: 058
     Dates: start: 20170312, end: 20170521
  4. METHOTREXATE. [Concomitant]
     Active Substance: METHOTREXATE
  5. FOLIC ACID. [Concomitant]
     Active Substance: FOLIC ACID
  6. VITAMIN B12 [Concomitant]
     Active Substance: CYANOCOBALAMIN
  7. GNC ULTRA MEGA GOLD [Concomitant]

REACTIONS (5)
  - Depression [None]
  - Amnesia [None]
  - Anhedonia [None]
  - Cognitive disorder [None]
  - Confusional state [None]
